FAERS Safety Report 8477762-X (Version None)
Quarter: 2012Q2

REPORT INFORMATION
  Report Type: 
  Country: None (occurrence: None)
  Receive Date: 20120629
  Receipt Date: 20110711
  Transmission Date: 20120825
  Serious: No
  Sender: FDA-Public Use
  Company Number: US-GLAXOSMITHKLINE-A0936317A

PATIENT
  Age: 60 Year
  Sex: Female

DRUGS (9)
  1. TOPROL-XL [Concomitant]
  2. METHOTREXATE [Concomitant]
  3. ZOCOR [Concomitant]
  4. FELDENE [Concomitant]
  5. AMBIEN [Concomitant]
  6. HUMIRA [Concomitant]
  7. FOLIC ACID [Concomitant]
  8. ALBUTEROL [Suspect]
     Indication: PNEUMONIA
     Dosage: 2PUFF SINGLE DOSE
     Route: 055
     Dates: start: 20090501, end: 20090501
  9. LORTAB [Concomitant]

REACTIONS (2)
  - DYSPNOEA [None]
  - BRONCHOSPASM [None]
